FAERS Safety Report 7757068-4 (Version None)
Quarter: 2011Q3

REPORT INFORMATION
  Report Type: 
  Country: None (occurrence: None)
  Receive Date: 20110825
  Receipt Date: 20110429
  Transmission Date: 20111222
  Serious: No
  Sender: FDA-Public Use
  Company Number: 324980

PATIENT
  Age: 36 Year
  Sex: Female

DRUGS (1)
  1. VICTOZA [Suspect]
     Indication: TYPE 2 DIABETES MELLITUS
     Dosage: SUBCUTANEOUS
     Route: 058

REACTIONS (6)
  - WEIGHT DECREASED [None]
  - VOMITING [None]
  - NAUSEA [None]
  - DEVICE MALFUNCTION [None]
  - MALAISE [None]
  - DECREASED APPETITE [None]
